FAERS Safety Report 6663818-0 (Version None)
Quarter: 2010Q2

REPORT INFORMATION
  Report Type: 
  Country: None (occurrence: None)
  Receive Date: 20100401
  Receipt Date: 20100323
  Transmission Date: 20101027
  Serious: Yes (Hospitalization)
  Sender: FDA-Public Use
  Company Number: FR-JNJFOC-20100302315

PATIENT
  Sex: Female
  Weight: 46.5 kg

DRUGS (3)
  1. INFLIXIMAB [Suspect]
     Indication: CROHN'S DISEASE
     Route: 042
  2. HUMIRA [Concomitant]
     Indication: CROHN'S DISEASE
  3. BUDESONIDE [Concomitant]

REACTIONS (2)
  - CROHN'S DISEASE [None]
  - DISEASE PROGRESSION [None]
